FAERS Safety Report 5664392-8 (Version None)
Quarter: 2008Q1

REPORT INFORMATION
  Report Type: 
  Country: None (occurrence: None)
  Receive Date: 20080311
  Receipt Date: 20080311
  Transmission Date: 20080703
  Serious: No
  Sender: FDA-Public Use
  Company Number: None

PATIENT
  Age: 76 Year
  Sex: Male

DRUGS (2)
  1. LINEZOLID [Suspect]
     Indication: ENTEROCOCCAL INFECTION
     Dosage: 600 MG Q 12HRS IV
     Route: 042
     Dates: start: 20070715, end: 20070808
  2. LINEZOLID [Suspect]
     Indication: SPINAL CORD INFECTION
     Dosage: 600 MG Q 12HRS IV
     Route: 042
     Dates: start: 20070715, end: 20070808

REACTIONS (5)
  - ANAEMIA POSTOPERATIVE [None]
  - HYPERTENSION [None]
  - PERIPHERAL VASCULAR DISORDER [None]
  - RENAL FAILURE [None]
  - THROMBOCYTOPENIA [None]
